FAERS Safety Report 6577784-X (Version None)
Quarter: 2010Q1

REPORT INFORMATION
  Report Type: 
  Country: None (occurrence: None)
  Receive Date: 20100211
  Receipt Date: 20100201
  Transmission Date: 20100710
  Serious: Yes (Hospitalization, Other)
  Sender: FDA-Public Use
  Company Number: US-ROCHE-672702

PATIENT
  Sex: Female
  Weight: 63 kg

DRUGS (8)
  1. BONIVA [Suspect]
     Indication: OSTEOPOROSIS
     Dosage: THERAPY DURATION REPORTED AS ^MANY YEARS^
     Route: 048
     Dates: start: 20050101, end: 20090616
  2. DIGOXIN [Concomitant]
     Indication: ATRIAL FIBRILLATION
     Route: 048
  3. NEXIUM [Concomitant]
     Route: 048
  4. TOPROL-XL [Concomitant]
     Indication: HYPERTENSION
     Route: 048
  5. COUMADIN [Concomitant]
     Indication: ATRIAL FIBRILLATION
     Route: 048
  6. COUMADIN [Concomitant]
     Route: 048
  7. CALCIUM [Concomitant]
     Indication: OSTEOPENIA
     Route: 048
  8. SONATA [Concomitant]

REACTIONS (6)
  - ANAEMIA [None]
  - INFECTION [None]
  - OSTEOMYELITIS [None]
  - OSTEONECROSIS [None]
  - TOOTH EXTRACTION [None]
  - WEIGHT DECREASED [None]
